FAERS Safety Report 11374541 (Version 1)
Quarter: 2015Q3

REPORT INFORMATION
  Report Type: Spontaneous
  Country: US (occurrence: None)
  Receive Date: 20150812
  Receipt Date: 20150812
  Transmission Date: 20151125
  Serious: Yes (Hospitalization)
  Sender: FDA-Public Use
  Company Number: None

PATIENT
  Age: 55 Year
  Sex: Male
  Weight: 71.2 kg

DRUGS (2)
  1. REGORAFENIB [Suspect]
     Active Substance: REGORAFENIB
     Indication: OESOPHAGEAL ADENOCARCINOMA
     Dates: start: 20150713, end: 20150801
  2. REGORAFENIB [Suspect]
     Active Substance: REGORAFENIB

REACTIONS (1)
  - Embolism [None]

NARRATIVE: CASE EVENT DATE: 20150804
